FAERS Safety Report 9435262 (Version 2)
Quarter: 2013Q3

REPORT INFORMATION
  Report Type: Spontaneous
  Country: JP (occurrence: None)
  Receive Date: 20130730
  Receipt Date: 20130821
  Transmission Date: 20140515
  Serious: Yes (Hospitalization)
  Sender: FDA-Public Use
  Company Number: AXC-2013-000325

PATIENT
  Age: 84 Year
  Sex: Female

DRUGS (27)
  1. URSODEOXYCHOLIC ACID [Suspect]
     Indication: JAUNDICE
     Route: 048
     Dates: start: 20130702, end: 20130708
  2. ASPARA-CA [Concomitant]
     Indication: OSTEOPOROSIS
     Route: 048
     Dates: start: 20130626, end: 20130702
  3. ASVERIN [Concomitant]
     Indication: COUGH
     Route: 048
     Dates: start: 20130702, end: 20130708
  4. AMLODIN (AMLODIPINE BESILATE) [Concomitant]
  5. GASRICK D (FAMOTIDINE) [Concomitant]
  6. SUNRYTHM (PILSICAINIDE HYDROCHLORIDE) [Concomitant]
  7. MAGMITT (MAGNESIUM OXIDE) [Concomitant]
  8. MUCOSOLVAN (AMBROXOL HYDROCHLORIDE) [Concomitant]
  9. CELECOX (CELECOXIB) [Suspect]
     Indication: PAIN
     Route: 048
     Dates: end: 20130702
  10. SORENTMIN?/00774301/ (BROTIZOLAM) [Concomitant]
  11. EDIROL (ELDECALCITOL) [Concomitant]
  12. TOCLASE?/00184902/ (PENTOXYVERINE CITRATE) [Concomitant]
  13. ADOFEED (FLURBIPROFEN) [Concomitant]
  14. B FLUID (AMINO ACID, CARBOHYDRATE, ELECTROLYTE, VITAMIN COMBINE) [Concomitant]
  15. PRIMPERAN (METOCLOPRAMIDE HYDROCHLORIDE) [Concomitant]
  16. MEYLON (SODIUM BICARBONATE) [Concomitant]
  17. SULPERAZON (CEFOPERAZONE SODIUM, SULBACTAM SODIUM) [Concomitant]
  18. CODEINE PHOSPHATE (CODEINE PHOSPHATE) [Concomitant]
  19. OYPALOMIN (IOPAMIDOL) [Concomitant]
  20. MERISLON (BETAHISTINE MESILATE) [Concomitant]
  21. LANSOPRAZOLE (LANSOPRAZOLE) [Concomitant]
  22. TSUMURA DAIKENCHUTO (HERBAL EXTRACT NOS, MEPYRAMINE MALEATE, PHENIRAMINE MALEATE, PHENYLPROPANOLAMINE, PHENYLTOLOXAMINE CITRATE) [Concomitant]
  23. BILISCOPIN (IOTROXATE MEGLUMINE) [Concomitant]
  24. ELCITONIN (ELCATONIN) [Concomitant]
  25. ZANTAC (RANITIDINE HYDROCHLORIDE) [Concomitant]
  26. REBAMIPIDE (REBAMIPIDE) [Concomitant]
  27. PRAZAXA (DABIGATRAN ETEXILATE MESILATE) [Concomitant]

REACTIONS (14)
  - Drug eruption [None]
  - Eosinophil count increased [None]
  - Rash erythematous [None]
  - Rash pruritic [None]
  - Hyponatraemia [None]
  - Hypokalaemia [None]
  - Cardiac failure [None]
  - Occult blood positive [None]
  - Insomnia [None]
  - Diarrhoea [None]
  - Faeces discoloured [None]
  - Anal skin tags [None]
  - Laceration [None]
  - Drug-induced liver injury [None]
